FAERS Safety Report 13364871 (Version 1)
Quarter: 2017Q1

REPORT INFORMATION
  Report Type: Spontaneous
  Country: US (occurrence: US)
  Receive Date: 20170323
  Receipt Date: 20170323
  Transmission Date: 20170429
  Serious: No
  Sender: FDA-Public Use
  Company Number: US-ROCHE-1471608

PATIENT
  Sex: Female

DRUGS (1)
  1. XOLAIR [Suspect]
     Active Substance: OMALIZUMAB
     Indication: ASTHMA
     Route: 065

REACTIONS (11)
  - Depression [Unknown]
  - Anxiety [Unknown]
  - Lower respiratory tract infection [Unknown]
  - Arthralgia [Unknown]
  - Neoplasm [Unknown]
  - Wound secretion [Unknown]
  - Gait disturbance [Unknown]
  - Pain in extremity [Unknown]
  - Pruritus [Unknown]
  - Rash [Unknown]
  - Mental disorder [Unknown]

NARRATIVE: CASE EVENT DATE: 20141009
